FAERS Safety Report 24894209 (Version 2)
Quarter: 2025Q2

REPORT INFORMATION
  Report Type: Spontaneous
  Country: US (occurrence: US)
  Receive Date: 20250128
  Receipt Date: 20250429
  Transmission Date: 20250716
  Serious: No
  Sender: BRISTOL-MYERS SQUIBB COMPANY
  Company Number: US-BRISTOL-MYERS SQUIBB COMPANY-2025-011972

PATIENT

DRUGS (12)
  1. OPDIVO [Suspect]
     Active Substance: NIVOLUMAB
     Indication: Hodgkin^s disease
     Dates: start: 20241018
  2. OPDIVO [Suspect]
     Active Substance: NIVOLUMAB
     Dates: start: 20241104
  3. OPDIVO [Suspect]
     Active Substance: NIVOLUMAB
     Dates: start: 20241120
  4. OPDIVO [Suspect]
     Active Substance: NIVOLUMAB
     Dates: start: 20241204
  5. OPDIVO [Suspect]
     Active Substance: NIVOLUMAB
     Dates: start: 20241218
  6. OPDIVO [Suspect]
     Active Substance: NIVOLUMAB
     Dates: start: 20250219
  7. OPDIVO [Suspect]
     Active Substance: NIVOLUMAB
     Dates: start: 20250305
  8. OPDIVO [Suspect]
     Active Substance: NIVOLUMAB
     Dates: start: 20240926
  9. OPDIVO [Suspect]
     Active Substance: NIVOLUMAB
     Dates: start: 20250109
  10. OPDIVO [Suspect]
     Active Substance: NIVOLUMAB
     Dates: start: 20250122
  11. OPDIVO [Suspect]
     Active Substance: NIVOLUMAB
     Dates: start: 20250205
  12. OPDIVO [Suspect]
     Active Substance: NIVOLUMAB
     Dates: start: 20250319

REACTIONS (1)
  - Off label use [Unknown]
